FAERS Safety Report 13066483 (Version 2)
Quarter: 2017Q1

REPORT INFORMATION
  Report Type: Report from Study
  Country: None (occurrence: US)
  Receive Date: 20161227
  Receipt Date: 20170207
  Transmission Date: 20170428
  Serious: Yes (Hospitalization, Other)
  Sender: FDA-Public Use
  Company Number: US-ABBVIE-16K-163-1813275-00

PATIENT
  Age: 66 Year
  Sex: Female

DRUGS (3)
  1. LYRICA [Concomitant]
     Active Substance: PREGABALIN
     Indication: PRODUCT USED FOR UNKNOWN INDICATION
  2. HUMIRA [Suspect]
     Active Substance: ADALIMUMAB
     Indication: RHEUMATOID ARTHRITIS
     Route: 058
  3. CYMBALTA [Concomitant]
     Active Substance: DULOXETINE HYDROCHLORIDE
     Indication: PRODUCT USED FOR UNKNOWN INDICATION

REACTIONS (6)
  - Rib fracture [Recovering/Resolving]
  - Fall [Recovering/Resolving]
  - Haemothorax [Recovering/Resolving]
  - Drug ineffective [Unknown]
  - Rheumatoid arthritis [Unknown]
  - Pneumothorax traumatic [Recovering/Resolving]

NARRATIVE: CASE EVENT DATE: 20161009
